FAERS Safety Report 8919921 (Version 1)
Quarter: 2012Q4

REPORT INFORMATION
  Report Type: Report from Study
  Country: CA (occurrence: CA)
  Receive Date: 20121121
  Receipt Date: 20121121
  Transmission Date: 20130627
  Serious: Yes (Hospitalization)
  Sender: FDA-Public Use
  Company Number: CA-ABBOTT-12P-028-1008165-00

PATIENT
  Age: 44 Year
  Sex: Female

DRUGS (1)
  1. MAVIK [Suspect]
     Indication: HYPERTENSION
     Dates: start: 200901

REACTIONS (4)
  - Neck pain [Recovering/Resolving]
  - Dyspnoea [Recovering/Resolving]
  - Chest pain [Recovering/Resolving]
  - Pain in extremity [Recovering/Resolving]
